FAERS Safety Report 9521971 (Version 1)
Quarter: 2013Q3

REPORT INFORMATION
  Report Type: Spontaneous
  Country: MX (occurrence: MX)
  Receive Date: 20130913
  Receipt Date: 20130913
  Transmission Date: 20140515
  Serious: Yes (Death, Other)
  Sender: FDA-Public Use
  Company Number: MX-UCBSA-097663

PATIENT
  Sex: Male

DRUGS (6)
  1. LEVETIRACETAM [Suspect]
  2. VALPROIC ACID [Suspect]
  3. PREGABALIN [Suspect]
  4. CLONAZEPAM [Suspect]
  5. VIGABATRINE [Suspect]
  6. POTASSIUM BROMIDE [Suspect]

REACTIONS (2)
  - Status epilepticus [Fatal]
  - Drug ineffective [Recovered/Resolved]
